FAERS Safety Report 22074402 (Version 1)
Quarter: 2023Q1

REPORT INFORMATION
  Report Type: Spontaneous
  Country: FR (occurrence: FR)
  Receive Date: 20230308
  Receipt Date: 20230308
  Transmission Date: 20230417
  Serious: No
  Sender: FDA-Public Use
  Company Number: FR-PFIZER INC-202300089674

PATIENT
  Age: 12 Year
  Sex: Male

DRUGS (1)
  1. SOMATROPIN [Suspect]
     Active Substance: SOMATROPIN
     Dosage: 1.6 MG, DAILY

REACTIONS (3)
  - Device issue [Unknown]
  - Drug dose omission by device [Unknown]
  - Intentional product misuse [Unknown]
